APPROVED DRUG PRODUCT: BREVIBLOC IN PLASTIC CONTAINER
Active Ingredient: ESMOLOL HYDROCHLORIDE
Strength: 1GM/100ML
Dosage Form/Route: INJECTABLE;INJECTION
Application: N019386 | Product #004 | TE Code: AP
Applicant: BAXTER HEALTHCARE CORP
Approved: Feb 16, 2001 | RLD: Yes | RS: Yes | Type: RX